FAERS Safety Report 11227199 (Version 1)
Quarter: 2015Q2

REPORT INFORMATION
  Report Type: Spontaneous
  Country: US (occurrence: None)
  Receive Date: 20150626
  Receipt Date: 20150626
  Transmission Date: 20150821
  Serious: No
  Sender: FDA-Public Use
  Company Number: None

PATIENT
  Age: 70 Year
  Sex: Female
  Weight: 64.41 kg

DRUGS (1)
  1. LIDOCAINE 5% ENDO [Suspect]
     Active Substance: LIDOCAINE
     Indication: PAIN
     Dosage: 1 PATCH UP TO THREE TIMES A DA PRN/AS NEEDED TRANSDERMAL
     Route: 062
     Dates: start: 20141015, end: 20150621

REACTIONS (4)
  - Application site erythema [None]
  - Application site swelling [None]
  - Application site inflammation [None]
  - Application site discolouration [None]

NARRATIVE: CASE EVENT DATE: 20150613
